FAERS Safety Report 25064278 (Version 1)
Quarter: 2025Q1

REPORT INFORMATION
  Report Type: Spontaneous
  Country: US (occurrence: None)
  Receive Date: 20250311
  Receipt Date: 20250311
  Transmission Date: 20250409
  Serious: Yes (Hospitalization)
  Sender: FDA-CTU
  Company Number: None

PATIENT
  Age: 70 Year
  Sex: Male
  Weight: 121.05 kg

DRUGS (2)
  1. MOUNJARO [Suspect]
     Active Substance: TIRZEPATIDE
     Indication: Type 2 diabetes mellitus
     Dosage: OTHER FREQUENCY : WEEKLY;?
     Route: 058
  2. SEMAGLUTIDE [Suspect]
     Active Substance: SEMAGLUTIDE

REACTIONS (8)
  - Fatigue [None]
  - Malaise [None]
  - Asthenia [None]
  - Diarrhoea [None]
  - Small intestinal obstruction [None]
  - Gastric dilatation [None]
  - Inguinal hernia [None]
  - Diverticulum intestinal [None]

NARRATIVE: CASE EVENT DATE: 20240406
